FAERS Safety Report 6134355-7 (Version None)
Quarter: 2009Q1

REPORT INFORMATION
  Report Type: 
  Country: None (occurrence: None)
  Receive Date: 20090327
  Receipt Date: 20090319
  Transmission Date: 20090719
  Serious: Yes (Life-Threatening)
  Sender: FDA-Public Use
  Company Number: GB-TEVA-188766ISR

PATIENT
  Age: 84 Year
  Sex: Female
  Weight: 60 kg

DRUGS (2)
  1. AMOXICILLIN AND CLAVULANATE POTASSIUM [Suspect]
     Indication: CHOLECYSTITIS
     Route: 042
     Dates: start: 20090127, end: 20090130
  2. METRONIDAZOLE [Suspect]
     Indication: CHOLECYSTITIS
     Route: 042
     Dates: start: 20090127, end: 20090130

REACTIONS (4)
  - COMA [None]
  - CONFUSIONAL STATE [None]
  - DIPLOPIA [None]
  - HYPOGLYCAEMIA [None]
